FAERS Safety Report 8901103 (Version 2)
Quarter: 2012Q4

REPORT INFORMATION
  Report Type: Report from Study
  Country: IT (occurrence: IT)
  Receive Date: 20121109
  Receipt Date: 20121120
  Transmission Date: 20130627
  Serious: Yes (Death, Hospitalization)
  Sender: FDA-Public Use
  Company Number: IT-SANOFI-AVENTIS-2012SA080336

PATIENT
  Age: 51 Year
  Sex: Male
  Weight: 95 kg

DRUGS (1)
  1. CABAZITAXEL [Suspect]
     Indication: SMALL CELL LUNG CANCER
     Route: 042
     Dates: start: 20121015, end: 20121015

REACTIONS (1)
  - Dyspnoea [Fatal]
